FAERS Safety Report 18762657 (Version 8)
Quarter: 2022Q3

REPORT INFORMATION
  Report Type: Report from Study
  Country: CA (occurrence: CA)
  Receive Date: 20210120
  Receipt Date: 20220826
  Transmission Date: 20221026
  Serious: Yes (Hospitalization, Other)
  Sender: FDA-Public Use
  Company Number: CA-BAUSCH-BL-2020-016807

PATIENT
  Sex: Male
  Weight: 144.22 kg

DRUGS (30)
  1. CONTRAVE [Suspect]
     Active Substance: BUPROPION HYDROCHLORIDE\NALTREXONE HYDROCHLORIDE
     Indication: Weight control
     Dosage: 90 MG/8 MG (1 DOSAGE FORMS,1 IN 1 D)
     Route: 048
     Dates: start: 20200530, end: 202006
  2. CONTRAVE [Suspect]
     Active Substance: BUPROPION HYDROCHLORIDE\NALTREXONE HYDROCHLORIDE
     Dosage: 90 MG/8 MG (1 DOSAGE FORMS,1 IN 12 HR)
     Route: 048
     Dates: start: 20200606, end: 20200612
  3. CONTRAVE [Suspect]
     Active Substance: BUPROPION HYDROCHLORIDE\NALTREXONE HYDROCHLORIDE
     Dosage: 90 MG/8 MG (1 IN 12 HR)
     Route: 048
     Dates: start: 20200613, end: 202006
  4. CONTRAVE [Suspect]
     Active Substance: BUPROPION HYDROCHLORIDE\NALTREXONE HYDROCHLORIDE
     Dosage: 90 MG/8 MG (2 TABLETS IN THE MORNING AND 1 TABLET IN THE EVENING)
     Route: 048
     Dates: start: 20200620, end: 2020
  5. CONTRAVE [Suspect]
     Active Substance: BUPROPION HYDROCHLORIDE\NALTREXONE HYDROCHLORIDE
     Dosage: 90 MG/8 MG; 1 TABLET IN THE MORNING AND 1 TABLET IN THE EVENING
     Route: 048
     Dates: start: 20201009, end: 202010
  6. CONTRAVE [Suspect]
     Active Substance: BUPROPION HYDROCHLORIDE\NALTREXONE HYDROCHLORIDE
     Dosage: 90 MG/8 MG; 1 TABLET A DAY
     Route: 048
     Dates: start: 20201113, end: 20201119
  7. CONTRAVE [Suspect]
     Active Substance: BUPROPION HYDROCHLORIDE\NALTREXONE HYDROCHLORIDE
     Dosage: 90 MG/8 MG; 1 TABLET IN THE MORNING AND 1 TABLET IN THE EVENING
     Route: 048
     Dates: start: 20201120, end: 202011
  8. CONTRAVE [Suspect]
     Active Substance: BUPROPION HYDROCHLORIDE\NALTREXONE HYDROCHLORIDE
     Dosage: 90 MG/8 MG; 2 TABLET IN THE MORNING AND 2 TABLET IN THE EVENING
     Route: 048
     Dates: start: 20201127, end: 2020
  9. CONTRAVE [Suspect]
     Active Substance: BUPROPION HYDROCHLORIDE\NALTREXONE HYDROCHLORIDE
     Dosage: UNK
     Route: 048
     Dates: start: 202012
  10. CONTRAVE [Suspect]
     Active Substance: BUPROPION HYDROCHLORIDE\NALTREXONE HYDROCHLORIDE
     Dosage: 90 MG/8 MG (1 DOSAGE FORMS,1 IN 12 HR)
     Route: 048
     Dates: start: 20210207
  11. CONTRAVE [Suspect]
     Active Substance: BUPROPION HYDROCHLORIDE\NALTREXONE HYDROCHLORIDE
     Dosage: 90 MG/8 MG, 2 TAB Q AM, 1 TAB Q PM
     Route: 048
     Dates: start: 202109
  12. BUPROPION HYDROCHLORIDE XL [Suspect]
     Active Substance: BUPROPION HYDROCHLORIDE
     Indication: Depression
     Dosage: 300 MG
     Route: 048
     Dates: end: 20220530
  13. BUPROPION HYDROCHLORIDE [Suspect]
     Active Substance: BUPROPION HYDROCHLORIDE
     Indication: Depression
     Dosage: DAILY, STOP DATE: NEXT WEEK
     Route: 048
     Dates: start: 20200606
  14. METFORMIN [Suspect]
     Active Substance: METFORMIN HYDROCHLORIDE
     Indication: Weight decreased
     Dosage: 2000 MG (1000 MG, 1 IN 12 HR)
     Route: 048
     Dates: start: 202201, end: 2022
  15. OZEMPIC [Suspect]
     Active Substance: SEMAGLUTIDE
     Indication: Weight decreased
     Dosage: 0.5 MG, 1 IN 1 D
     Route: 058
     Dates: start: 2022
  16. INDAPAMIDE [Concomitant]
     Active Substance: INDAPAMIDE
     Indication: Hypertension
     Dosage: 2.5 MG
     Route: 048
     Dates: start: 20200607
  17. INDAPAMIDE [Concomitant]
     Active Substance: INDAPAMIDE
     Dosage: STOPPED: 22/JUN/2020 (APPROX)
     Route: 048
     Dates: start: 20200608, end: 202006
  18. TYLENOL [Concomitant]
     Active Substance: ACETAMINOPHEN
     Indication: Pain
     Dosage: UNK
  19. ROBAXACET [Concomitant]
     Active Substance: ACETAMINOPHEN\METHOCARBAMOL
     Indication: Muscle relaxant therapy
     Dosage: UNK
  20. METHOCARBAMOL [Concomitant]
     Active Substance: METHOCARBAMOL
     Indication: Muscle relaxant therapy
     Dosage: 400 MG
  21. ACETAMINOPHEN [Concomitant]
     Active Substance: ACETAMINOPHEN
     Indication: Muscle relaxant therapy
     Dosage: 500 MG
  22. ADALAT [Concomitant]
     Active Substance: NIFEDIPINE
     Indication: Blood pressure increased
     Dosage: 30 MG
     Route: 048
     Dates: end: 202012
  23. ADALAT [Concomitant]
     Active Substance: NIFEDIPINE
     Dosage: 60 MG
     Route: 048
     Dates: start: 202012, end: 20210116
  24. ADALAT [Concomitant]
     Active Substance: NIFEDIPINE
     Dosage: 90 MG
     Route: 048
     Dates: start: 20210117
  25. PANTOPRAZOLE [Concomitant]
     Active Substance: PANTOPRAZOLE
     Indication: Gastrooesophageal reflux disease
     Dosage: 40 MG, 1 IN 1 D
     Route: 048
  26. SERTRALINE [Concomitant]
     Active Substance: SERTRALINE HYDROCHLORIDE
     Indication: Depression
     Dosage: 150 MG, 1 IN 1 D
     Route: 048
  27. ARIPIPRAZOLE [Concomitant]
     Active Substance: ARIPIPRAZOLE
     Indication: Depression
     Dosage: 3 MG, 1 IN 1 D
     Route: 048
  28. XARELTO [Concomitant]
     Active Substance: RIVAROXABAN
     Indication: Anticoagulant therapy
     Dosage: 10 MG, 1 IN 1 D
     Route: 048
  29. TAMSULOSIN [Concomitant]
     Active Substance: TAMSULOSIN
     Indication: Renal disorder
     Dosage: 5 MG, 1 IN 1 D
     Route: 048
  30. ROSUVASTATIN [Concomitant]
     Active Substance: ROSUVASTATIN
     Indication: Blood cholesterol
     Dosage: 5 MG, 1 IN 1 D
     Route: 048

REACTIONS (41)
  - Knee arthroplasty [Recovering/Resolving]
  - Hip arthroplasty [Recovering/Resolving]
  - Retinal detachment [Recovered/Resolved]
  - Cataract [Recovered/Resolved]
  - Migraine [Recovered/Resolved]
  - Sciatica [Unknown]
  - Food craving [Not Recovered/Not Resolved]
  - Blood pressure decreased [Recovered/Resolved]
  - Appetite disorder [Not Recovered/Not Resolved]
  - Weight increased [Unknown]
  - Hepatic mass [Unknown]
  - Arterial disorder [Unknown]
  - Mobility decreased [Not Recovered/Not Resolved]
  - Joint stiffness [Not Recovered/Not Resolved]
  - Post procedural complication [Recovered/Resolved]
  - Pain in extremity [Not Recovered/Not Resolved]
  - Muscle spasms [Not Recovered/Not Resolved]
  - Diplopia [Not Recovered/Not Resolved]
  - Abdominal distension [Not Recovered/Not Resolved]
  - Sleep disorder [Recovering/Resolving]
  - Myalgia [Not Recovered/Not Resolved]
  - Chest pain [Unknown]
  - Arthralgia [Not Recovered/Not Resolved]
  - Dyspepsia [Recovering/Resolving]
  - Dyspnoea [Unknown]
  - Feeling abnormal [Unknown]
  - Abnormal dreams [Recovered/Resolved]
  - Anxiety [Not Recovered/Not Resolved]
  - Dizziness [Not Recovered/Not Resolved]
  - Headache [Not Recovered/Not Resolved]
  - Blood pressure increased [Recovering/Resolving]
  - Fatigue [Not Recovered/Not Resolved]
  - Nausea [Recovered/Resolved]
  - Vomiting [Recovered/Resolved]
  - Diarrhoea [Recovered/Resolved]
  - Depressed mood [Recovering/Resolving]
  - Product prescribing error [Unknown]
  - Contraindicated product administered [Unknown]
  - Drug titration error [Unknown]
  - Product dose omission issue [Unknown]
  - Product use in unapproved indication [Unknown]

NARRATIVE: CASE EVENT DATE: 20200101
